FAERS Safety Report 17178421 (Version 1)
Quarter: 2019Q4

REPORT INFORMATION
  Report Type: Spontaneous
  Country: SE (occurrence: SE)
  Receive Date: 20191219
  Receipt Date: 20191219
  Transmission Date: 20200122
  Serious: Yes (Death, Life-Threatening, Hospitalization)
  Sender: FDA-Public Use
  Company Number: SE-TEVA-2019-SE-1153415

PATIENT
  Age: 71 Year
  Sex: Female

DRUGS (17)
  1. CEFOTAXIME [Suspect]
     Active Substance: CEFOTAXIME SODIUM
     Indication: ORGANISING PNEUMONIA
     Route: 048
     Dates: start: 201312
  2. ATENOLOL. [Concomitant]
     Active Substance: ATENOLOL
  3. LANTUS [Concomitant]
     Active Substance: INSULIN GLARGINE
  4. HUMALOG [Concomitant]
     Active Substance: INSULIN LISPRO
  5. AMLODIPINE [Concomitant]
     Active Substance: AMLODIPINE BESYLATE
  6. VAGIFEM [Concomitant]
     Active Substance: ESTRADIOL
  7. KORTISON [Suspect]
     Active Substance: CORTISONE ACETATE
     Route: 048
     Dates: start: 201312
  8. ARANESP [Concomitant]
     Active Substance: DARBEPOETIN ALFA
  9. ATORVASTATIN [Concomitant]
     Active Substance: ATORVASTATIN
  10. LORATADINE. [Concomitant]
     Active Substance: LORATADINE
  11. ESOMEPRAZOLE. [Concomitant]
     Active Substance: ESOMEPRAZOLE MAGNESIUM
  12. FURIX 40 MG TABLETT [Concomitant]
  13. AVELOX [Suspect]
     Active Substance: MOXIFLOXACIN HYDROCHLORIDE
     Indication: ORGANISING PNEUMONIA
     Route: 048
     Dates: start: 201312
  14. ALFADIL 4 MG DEPOTTABLETT [Concomitant]
  15. LOSARTAN. [Suspect]
     Active Substance: LOSARTAN
     Indication: HYPERTENSION
     Route: 048
     Dates: start: 2014
  16. PREDNISOLONE. [Concomitant]
     Active Substance: PREDNISOLONE
  17. ETALPHA [Concomitant]
     Active Substance: ALFACALCIDOL

REACTIONS (2)
  - Toxic epidermal necrolysis [Fatal]
  - Stevens-Johnson syndrome [Fatal]
